FAERS Safety Report 6878619-8 (Version None)
Quarter: 2010Q3

REPORT INFORMATION
  Report Type: 
  Country: None (occurrence: None)
  Receive Date: 20100728
  Receipt Date: 20100714
  Transmission Date: 20110219
  Serious: Yes (Hospitalization)
  Sender: FDA-Public Use
  Company Number: A0866953A

PATIENT
  Age: 69 Year
  Sex: Male

DRUGS (9)
  1. AVANDIA [Suspect]
     Indication: DIABETES MELLITUS
     Dosage: 8MG PER DAY
     Route: 048
     Dates: start: 20040510, end: 20080701
  2. CELEBREX [Concomitant]
  3. GLIPIZIDE [Concomitant]
  4. INDAPAMIDE [Concomitant]
  5. LIPITOR [Concomitant]
  6. PLAVIX [Concomitant]
  7. PRILOSEC [Concomitant]
  8. PRINIVIL [Concomitant]
  9. TOPROL-XL [Concomitant]

REACTIONS (2)
  - CARDIAC FAILURE CONGESTIVE [None]
  - MYOCARDIAL INFARCTION [None]
